FAERS Safety Report 5764961-0 (Version None)
Quarter: 2008Q2

REPORT INFORMATION
  Report Type: 
  Country: None (occurrence: None)
  Receive Date: 20080611
  Receipt Date: 20080606
  Transmission Date: 20081010
  Serious: Yes (Other)
  Sender: FDA-Public Use
  Company Number: B0523988A

PATIENT
  Sex: Female

DRUGS (1)
  1. SEREVENT [Suspect]
     Indication: DRUG USE FOR UNKNOWN INDICATION
     Route: 055

REACTIONS (4)
  - ANGIOEDEMA [None]
  - BLOOD PRESSURE INCREASED [None]
  - OEDEMA [None]
  - SOMNOLENCE [None]
